FAERS Safety Report 9641804 (Version 1)
Quarter: 2013Q4

REPORT INFORMATION
  Report Type: Spontaneous
  Country: IN (occurrence: None)
  Receive Date: 20131021
  Receipt Date: 20131021
  Transmission Date: 20140711
  Serious: Yes (Other)
  Sender: FDA-Public Use
  Company Number: C-13-099

PATIENT
  Age: 60 Year
  Sex: Male

DRUGS (2)
  1. HYDROXYZINE [Suspect]
     Indication: ANXIETY
  2. MEPROBAMATE [Concomitant]

REACTIONS (1)
  - Drug eruption [None]
